FAERS Safety Report 4312154-6 (Version None)
Quarter: 2004Q1

REPORT INFORMATION
  Report Type: 
  Country: None (occurrence: None)
  Receive Date: 20040303
  Receipt Date: 20040219
  Transmission Date: 20041129
  Serious: Yes (Hospitalization)
  Sender: FDA-Public Use
  Company Number: 2004007022

PATIENT
  Age: 80 Year
  Sex: Male

DRUGS (9)
  1. LIPITOR [Suspect]
     Indication: HYPERLIPIDAEMIA
     Dosage: 10 MG (DAILY), ORAL
     Route: 048
     Dates: start: 20020109, end: 20040119
  2. BUFFERIN (ACETYSALICYLIC ACID, MAGNESIUM CARBONATE, ALUMINIUM) [Concomitant]
  3. CARVEDILOL (CERVEDILOL) [Concomitant]
  4. LOSARTAN POTASSIUM (LOSARTAN POTASSIUM) [Concomitant]
  5. FLUVOXAMINE MALEATE [Concomitant]
  6. SODIUM PICOSULFATE (SODIUM PICOSULFATE) [Concomitant]
  7. SENNA LEAF (SENNA LEAF) [Concomitant]
  8. SULPIRIDE (SULPIRIDE) [Concomitant]
  9. LANSOPRAZOLE [Concomitant]

REACTIONS (9)
  - ABASIA [None]
  - ALDOLASE INCREASED [None]
  - ANTINUCLEAR ANTIBODY POSITIVE [None]
  - ASTHENIA [None]
  - BLOOD CREATINE PHOSPHOKINASE INCREASED [None]
  - BLOOD LACTATE DEHYDROGENASE INCREASED [None]
  - GAIT DISTURBANCE [None]
  - MYALGIA [None]
  - MYOGLOBIN URINE PRESENT [None]
